FAERS Safety Report 25777461 (Version 1)
Quarter: 2025Q3

REPORT INFORMATION
  Report Type: Spontaneous
  Country: US (occurrence: US)
  Receive Date: 20250909
  Receipt Date: 20250909
  Transmission Date: 20251021
  Serious: Yes (Hospitalization, Other)
  Sender: CSL BEHRING
  Company Number: US-BEH-2025217910

PATIENT
  Age: 66 Year
  Sex: Male
  Weight: 103 kg

DRUGS (2)
  1. MIRCERA [Suspect]
     Active Substance: METHOXY POLYETHYLENE GLYCOL-EPOETIN BETA
     Indication: Nephrogenic anaemia
     Dosage: 75 ?G, QOW
     Route: 040
     Dates: start: 20250829, end: 20250829
  2. HECTOROL [Concomitant]
     Active Substance: DOXERCALCIFEROL
     Dates: start: 20231204

REACTIONS (3)
  - Blood pressure decreased [Unknown]
  - Unresponsive to stimuli [Unknown]
  - Tremor [Unknown]

NARRATIVE: CASE EVENT DATE: 20250829
